FAERS Safety Report 6492279-X (Version None)
Quarter: 2009Q4

REPORT INFORMATION
  Report Type: 
  Country: None (occurrence: None)
  Receive Date: 20091214
  Receipt Date: 20091209
  Transmission Date: 20100525
  Serious: Yes (Death)
  Sender: FDA-Public Use
  Company Number: PHHY2009CA53825

PATIENT
  Sex: Female

DRUGS (15)
  1. ALISKIREN ALI+ [Suspect]
     Indication: HYPERTENSION
     Dosage: 300 MG, QD
     Route: 048
     Dates: start: 20090511, end: 20091108
  2. ACETAMINOPHEN [Concomitant]
  3. VENTOLIN [Concomitant]
  4. AAS [Concomitant]
  5. LECTOPAM TAB [Concomitant]
  6. ACTONEL [Concomitant]
  7. AVAPRO [Concomitant]
  8. LASIX [Concomitant]
  9. LIPITOR [Concomitant]
  10. TIAZAC [Concomitant]
  11. SPIRIVA [Concomitant]
  12. CARBOCAL D [Concomitant]
  13. SYNTHROID [Concomitant]
  14. LUVOX [Concomitant]
  15. REMERON [Concomitant]

REACTIONS (1)
  - AORTIC ANEURYSM RUPTURE [None]
